FAERS Safety Report 8369038-6 (Version None)
Quarter: 2012Q2

REPORT INFORMATION
  Report Type: 
  Country: None (occurrence: None)
  Receive Date: 20120518
  Receipt Date: 20120514
  Transmission Date: 20120825
  Serious: Yes (Other)
  Sender: FDA-Public Use
  Company Number: BR-SANOFI-AVENTIS-2012SA034380

PATIENT
  Age: 41 Year
  Sex: Female
  Weight: 79 kg

DRUGS (4)
  1. AMARYL [Suspect]
     Route: 048
     Dates: start: 20100101
  2. HYDROCHLOROTHIAZIDE [Concomitant]
     Indication: HYPERTENSION
     Route: 048
     Dates: start: 19900101
  3. RENITEC /USA/ [Concomitant]
     Indication: HYPERTENSION
     Dosage: STRENGTH: 10MG
     Route: 048
     Dates: start: 20100101
  4. METFORMIN HCL [Concomitant]
     Route: 048
     Dates: start: 20120511

REACTIONS (5)
  - VISUAL IMPAIRMENT [None]
  - BLINDNESS UNILATERAL [None]
  - RETINAL DETACHMENT [None]
  - EYE IRRITATION [None]
  - DIABETIC RETINOPATHY [None]
